FAERS Safety Report 8530747-7 (Version None)
Quarter: 2012Q3

REPORT INFORMATION
  Report Type: 
  Country: None (occurrence: None)
  Receive Date: 20120723
  Receipt Date: 20120718
  Transmission Date: 20120928
  Serious: Yes (Hospitalization)
  Sender: FDA-Public Use
  Company Number: PHHY2010MX80282

PATIENT
  Age: 46 Year
  Sex: Female

DRUGS (2)
  1. STEROIDS NOS [Concomitant]
     Dosage: UNK UKN, UNK
  2. ZOLEDRONOC ACID [Suspect]
     Indication: OSTEOPOROSIS
     Dosage: 5 MG, UNK
     Route: 042
     Dates: start: 20100301

REACTIONS (4)
  - OSTEOPENIA [None]
  - PYREXIA [None]
  - CHEST PAIN [None]
  - BACK PAIN [None]
